FAERS Safety Report 9971605 (Version 1)
Quarter: 2014Q1

REPORT INFORMATION
  Report Type: Spontaneous
  Country: US (occurrence: None)
  Receive Date: 20140305
  Receipt Date: 20140305
  Transmission Date: 20141002
  Serious: Yes (Disabling)
  Sender: FDA-Public Use
  Company Number: None

PATIENT
  Age: 50 Year
  Sex: Female
  Weight: 67.13 kg

DRUGS (2)
  1. LEVAQUIN [Suspect]
     Indication: SINUSITIS
     Dosage: TAKEN BY MOUTH
     Dates: start: 20140220, end: 20140225
  2. LEVAQUIN [Suspect]
     Indication: SINUSITIS
     Dosage: TAKEN BY MOUTH
     Dates: start: 20140220, end: 20140225

REACTIONS (8)
  - Hypoaesthesia [None]
  - Paraesthesia [None]
  - Arthralgia [None]
  - Arthralgia [None]
  - Tendonitis [None]
  - Headache [None]
  - Myalgia [None]
  - Arthralgia [None]
